FAERS Safety Report 18099228 (Version 1)
Quarter: 2020Q3

REPORT INFORMATION
  Report Type: Spontaneous
  Country: NL (occurrence: NL)
  Receive Date: 20200731
  Receipt Date: 20200731
  Transmission Date: 20201103
  Serious: Yes (Other)
  Sender: FDA-Public Use
  Company Number: NL-MYLANLABS-2020M1067659

PATIENT
  Age: 43 Year
  Sex: Female

DRUGS (2)
  1. MONTELUKAST [Suspect]
     Active Substance: MONTELUKAST SODIUM
     Indication: DYSPNOEA
     Dosage: 1 PIECE PER DAY
     Dates: start: 20200612, end: 20200614
  2. FLIXOTIDE [Concomitant]
     Active Substance: FLUTICASONE PROPIONATE
     Dosage: 250 MICROGRAM (DISKUS 250 UG)

REACTIONS (5)
  - Hyperhidrosis [Recovered/Resolved]
  - Hallucination [Recovered/Resolved]
  - Presyncope [Recovered/Resolved]
  - Febrile convulsion [Recovered/Resolved]
  - Palpitations [Recovered/Resolved]

NARRATIVE: CASE EVENT DATE: 20200612
